FAERS Safety Report 7951151-6 (Version None)
Quarter: 2011Q4

REPORT INFORMATION
  Report Type: 
  Country: None (occurrence: None)
  Receive Date: 20111201
  Receipt Date: 20111118
  Transmission Date: 20120403
  Serious: Yes (Hospitalization)
  Sender: FDA-Public Use
  Company Number: US-UCBSA-040575

PATIENT
  Age: 19 Year
  Sex: Female
  Weight: 52 kg

DRUGS (9)
  1. VIMPAT [Suspect]
     Indication: EPILEPSY
     Route: 048
     Dates: start: 20110622
  2. INVESTIGATIONAL DRUG (PERAMPANEL) [Suspect]
     Route: 048
     Dates: end: 20100518
  3. KLONOPIN [Suspect]
     Indication: EPILEPSY
     Route: 048
     Dates: start: 20090101
  4. TRILEPTAL [Suspect]
     Indication: EPILEPSY
     Route: 048
     Dates: start: 20060101, end: 20110810
  5. FOLIC ACID [Concomitant]
     Route: 048
  6. INVESTIGATIONAL DRUG (PERAMPANEL) [Suspect]
     Indication: EPILEPSY
     Route: 048
     Dates: start: 20100519
  7. ZONEGRAN [Suspect]
     Indication: EPILEPSY
     Dosage: 200 MG IN THE MORNING AND 300 MG IN THE EVENING.
     Route: 048
     Dates: start: 20050101
  8. MELATONIN [Concomitant]
     Indication: INSOMNIA
     Route: 048
  9. DIASTAT [Concomitant]
     Indication: EPILEPSY
     Dosage: 12.5 AS REQUIRED
     Route: 054

REACTIONS (2)
  - CONVULSION [None]
  - MENTAL STATUS CHANGES [None]
